FAERS Safety Report 7369833-6 (Version None)
Quarter: 2011Q1

REPORT INFORMATION
  Report Type: 
  Country: None (occurrence: None)
  Receive Date: 20110323
  Receipt Date: 20110317
  Transmission Date: 20110831
  Serious: Yes (Hospitalization, Other)
  Sender: FDA-Public Use
  Company Number: CA-PFIZER INC-2011049541

PATIENT
  Sex: Male

DRUGS (7)
  1. EFFEXOR XR [Suspect]
     Indication: DEPRESSION
     Dosage: 37.5 MG, 1X/DAY
     Route: 048
     Dates: start: 20070111
  2. CELEXA [Concomitant]
     Dosage: UNK
     Dates: end: 20080101
  3. SEROQUEL [Concomitant]
     Dosage: UNK
     Dates: end: 20080101
  4. EFFEXOR XR [Suspect]
     Dosage: 150 MG, 1X/DAY
     Route: 048
     Dates: end: 20080901
  5. BENZODIAZEPINE [Concomitant]
     Indication: BIPOLAR DISORDER
     Dosage: UNK
     Dates: end: 20080101
  6. ANTIPSYCHOTICS [Concomitant]
     Dosage: UNK
     Dates: end: 20080101
  7. ATIVAN [Suspect]
     Dosage: UNK

REACTIONS (6)
  - SUICIDAL IDEATION [None]
  - FEELING ABNORMAL [None]
  - INTENTIONAL DRUG MISUSE [None]
  - PANIC ATTACK [None]
  - DRUG DEPENDENCE [None]
  - ANXIETY [None]
